FAERS Safety Report 10056239 (Version 2)
Quarter: 2014Q2

REPORT INFORMATION
  Report Type: Spontaneous
  Country: NL (occurrence: NL)
  Receive Date: 20140403
  Receipt Date: 20140403
  Transmission Date: 20141212
  Serious: Yes (Disabling)
  Sender: FDA-Public Use
  Company Number: NL-MERCK-1402NLD013701

PATIENT
  Age: 69 Year
  Sex: Female

DRUGS (3)
  1. SINEMET CR [Suspect]
     Dosage: ^OLD^ PINK TABLETS,TOTAL DAILY DOSE: 400 MG LEVODOPA, 100 MG CARBIDOPA
     Route: 048
     Dates: start: 1989, end: 20140106
  2. SINEMET CR [Suspect]
     Dosage: ^NEW^ TABLETS WITH ANOTHER COLOR, TOTAL DOSE:400MG LEVODOPA,100MG CARBIDOPA
     Route: 048
     Dates: start: 20140107, end: 2014
  3. SINEMET CR [Suspect]
     Dosage: TOTAL DAILY DOSE: 400MG LEVODOPA, 100MG CARBIDOPA

REACTIONS (3)
  - Mobility decreased [Recovered/Resolved]
  - Musculoskeletal stiffness [Recovered/Resolved]
  - Abasia [Recovered/Resolved]
